FAERS Safety Report 16094309 (Version 1)
Quarter: 2019Q1

REPORT INFORMATION
  Report Type: Spontaneous
  Country: GR (occurrence: GR)
  Receive Date: 20190320
  Receipt Date: 20190320
  Transmission Date: 20190418
  Serious: Yes (Hospitalization)
  Sender: FDA-Public Use
  Company Number: GR-TEVA-2019-GR-1027299

PATIENT
  Age: 69 Year
  Sex: Male
  Weight: 90 kg

DRUGS (4)
  1. CARBOPLATIN. [Suspect]
     Active Substance: CARBOPLATIN
     Indication: LUNG ADENOCARCINOMA
     Route: 042
  2. PACLITAXEL. [Suspect]
     Active Substance: PACLITAXEL
     Indication: LUNG ADENOCARCINOMA
     Route: 042
  3. FENISTIL 4 MG/4 ML AMP INJ SOL [Concomitant]
     Indication: HYPERSENSITIVITY
     Route: 042
  4. SOLU-CORTEF 250 MG [Concomitant]
     Indication: HYPERSENSITIVITY
     Route: 042

REACTIONS (3)
  - Cough [Recovered/Resolved]
  - Hypotension [Recovering/Resolving]
  - Dyspnoea [Recovered/Resolved]
